FAERS Safety Report 6907084-7 (Version None)
Quarter: 2010Q3

REPORT INFORMATION
  Report Type: 
  Country: None (occurrence: None)
  Receive Date: 20100804
  Receipt Date: 20081006
  Transmission Date: 20110219
  Serious: Yes (Hospitalization)
  Sender: FDA-Public Use
  Company Number: US-PFIZER INC-2008056108

PATIENT
  Sex: Male
  Weight: 68.3 kg

DRUGS (12)
  1. MARAVIROC [Suspect]
     Indication: HIV INFECTION
     Route: 048
     Dates: start: 20080331
  2. ZITHROMAX [Concomitant]
     Route: 048
     Dates: start: 20070417
  3. BACTRIM [Concomitant]
     Route: 048
     Dates: start: 20070417
  4. FLUCONAZOLE [Concomitant]
     Route: 048
     Dates: start: 20070417
  5. KALETRA [Concomitant]
     Route: 048
     Dates: start: 20070417
  6. CLONAZEPAM [Concomitant]
     Route: 048
     Dates: start: 20070417
  7. REYATAZ [Concomitant]
     Route: 048
     Dates: start: 20080414
  8. ISENTRESS [Concomitant]
     Route: 048
     Dates: start: 20080414
  9. MULTI-VITAMINS [Concomitant]
     Route: 048
     Dates: start: 20080414
  10. ALEVE (CAPLET) [Concomitant]
     Route: 048
     Dates: start: 20080627, end: 20080630
  11. IBUPROFEN [Concomitant]
     Route: 048
     Dates: start: 20080627, end: 20080630
  12. ACETAMINOPHEN [Concomitant]
     Route: 048
     Dates: start: 20080627, end: 20080630

REACTIONS (2)
  - TESTICULAR NEOPLASM [None]
  - TESTICULAR SWELLING [None]
